FAERS Safety Report 4756714-7 (Version None)
Quarter: 2005Q3

REPORT INFORMATION
  Report Type: 
  Country: None (occurrence: None)
  Receive Date: 20050830
  Receipt Date: 20050825
  Transmission Date: 20060218
  Serious: Yes (Life-Threatening)
  Sender: FDA-Public Use
  Company Number: CN-MERCK-0508CHN00033

PATIENT
  Age: 19 Year
  Sex: Male

DRUGS (8)
  1. PRIMAXIN [Suspect]
     Indication: PNEUMONIA KLEBSIELLA
     Route: 042
     Dates: start: 20050822, end: 20050823
  2. PRIMAXIN [Suspect]
     Route: 042
     Dates: start: 20050825
  3. PRIMAXIN [Suspect]
     Indication: BACTERAEMIA
     Route: 042
     Dates: start: 20050822, end: 20050823
  4. PRIMAXIN [Suspect]
     Route: 042
     Dates: start: 20050825
  5. GLUTATHIONE [Concomitant]
     Route: 051
  6. HEPARIN [Concomitant]
     Route: 051
  7. [THERAPY UNSPECIFIED] [Concomitant]
     Route: 051
  8. [THERAPY UNSPECIFIED] [Concomitant]
     Route: 051

REACTIONS (1)
  - RHABDOMYOLYSIS [None]
